FAERS Safety Report 13243897 (Version 1)
Quarter: 2017Q1

REPORT INFORMATION
  Report Type: Spontaneous
  Country: US (occurrence: US)
  Receive Date: 20170217
  Receipt Date: 20170217
  Transmission Date: 20170428
  Serious: Yes (Other)
  Sender: FDA-Public Use
  Company Number: None

PATIENT
  Age: 65 Year
  Sex: Female
  Weight: 102.15 kg

DRUGS (14)
  1. NORCO [Concomitant]
     Active Substance: ACETAMINOPHEN\HYDROCODONE BITARTRATE
  2. AMBIEN [Concomitant]
     Active Substance: ZOLPIDEM TARTRATE
  3. GABAPENTIN. [Concomitant]
     Active Substance: GABAPENTIN
  4. RESTASIS [Concomitant]
     Active Substance: CYCLOSPORINE
  5. FISH OIL [Concomitant]
     Active Substance: FISH OIL
  6. CELLUVISC EYE DROPS [Concomitant]
  7. PILOCARPINE HCL [Suspect]
     Active Substance: PILOCARPINE HYDROCHLORIDE
     Indication: DRY MOUTH
     Dosage: ?          QUANTITY:0NE PILL?
     Route: 048
     Dates: start: 20161223, end: 20170201
  8. FLUOROMETHOLONE. [Concomitant]
     Active Substance: FLUOROMETHOLONE
  9. VITAMIN D [Concomitant]
     Active Substance: CHOLECALCIFEROL
  10. FLEXERIL [Concomitant]
     Active Substance: CYCLOBENZAPRINE HYDROCHLORIDE
  11. HYDROPHILIC OINTMENT [Concomitant]
     Active Substance: HYDROPHILIC OINTMENT
  12. ERYTHROMYCIN 2.5% OPH OINT [Concomitant]
  13. ETODOLAC. [Concomitant]
     Active Substance: ETODOLAC
  14. LISINOPRIL. [Concomitant]
     Active Substance: LISINOPRIL

REACTIONS (1)
  - Heart rate increased [None]

NARRATIVE: CASE EVENT DATE: 20170124
